FAERS Safety Report 9931018 (Version 1)
Quarter: 2014Q1

REPORT INFORMATION
  Report Type: Spontaneous
  Country: GB (occurrence: GB)
  Receive Date: 20140227
  Receipt Date: 20140227
  Transmission Date: 20141002
  Serious: Yes (Disabling)
  Sender: FDA-Public Use
  Company Number: GB-ASTRAZENECA-2014SE12864

PATIENT
  Age: 77 Year
  Sex: Female
  Weight: 96 kg

DRUGS (7)
  1. TICAGRELOR [Suspect]
     Route: 048
  2. ASPIRIN [Concomitant]
     Dates: start: 20140122
  3. BENDROFLUMETHIAZIDE [Concomitant]
     Dates: start: 20131023
  4. DICLOFENAC SODIUM [Concomitant]
     Dates: start: 20131023
  5. LISINOPRIL [Concomitant]
     Dates: start: 20131023
  6. PARACETAMOL [Concomitant]
     Dates: start: 20131023
  7. SIMVASTATIN [Concomitant]
     Dates: start: 20131023

REACTIONS (3)
  - Anxiety [Unknown]
  - Dyspnoea [Recovered/Resolved]
  - Nausea [Unknown]
